FAERS Safety Report 8941028 (Version 1)
Quarter: 2012Q4

REPORT INFORMATION
  Report Type: Report from Study
  Country: TR (occurrence: TR)
  Receive Date: 20121203
  Receipt Date: 20121203
  Transmission Date: 20130627
  Serious: Yes (Life-Threatening)
  Sender: FDA-Public Use
  Company Number: TR-ROCHE-1161997

PATIENT
  Age: 34 Year
  Sex: Female

DRUGS (2)
  1. CAPECITABINE [Suspect]
     Indication: BREAST CANCER
     Route: 065
     Dates: start: 20111213
  2. CAPECITABINE [Suspect]
     Indication: METASTASES TO LUNG

REACTIONS (1)
  - Metastases to liver [Not Recovered/Not Resolved]
